FAERS Safety Report 6733431-5 (Version None)
Quarter: 2010Q2

REPORT INFORMATION
  Report Type: 
  Country: None (occurrence: None)
  Receive Date: 20100520
  Receipt Date: 20100510
  Transmission Date: 20101027
  Serious: Yes (Other)
  Sender: FDA-Public Use
  Company Number: US-TYCO HEALTHCARE/MALLINCKRODT-T201001207

PATIENT
  Sex: Female

DRUGS (2)
  1. OXYCODONE HCL AND ACETAMINOPHEN [Suspect]
     Indication: SURGERY
     Dosage: UNK
  2. PERCOCET [Suspect]
     Indication: SURGERY
     Dosage: 325 MG, UNK
     Route: 048

REACTIONS (6)
  - CONSTIPATION [None]
  - DRUG INEFFECTIVE [None]
  - FEELING ABNORMAL [None]
  - HALLUCINATION, AUDITORY [None]
  - INFREQUENT BOWEL MOVEMENTS [None]
  - WEIGHT DECREASED [None]
